FAERS Safety Report 6640251-9 (Version None)
Quarter: 2010Q1

REPORT INFORMATION
  Report Type: 
  Country: None (occurrence: None)
  Receive Date: 20100318
  Receipt Date: 20100308
  Transmission Date: 20100710
  Serious: Yes (Other)
  Sender: FDA-Public Use
  Company Number: US-ROCHE-690353

PATIENT
  Age: 57 Year
  Sex: Male

DRUGS (4)
  1. VALIUM [Suspect]
     Indication: DRUG USE FOR UNKNOWN INDICATION
     Route: 065
     Dates: end: 20090901
  2. ASMANEX TWISTHALER [Concomitant]
  3. MIRTAZAPINE [Concomitant]
     Dosage: 7.55 MG TO 15 MG AT BEDTIME AS NECESSARY
  4. ALBUTEROL [Concomitant]

REACTIONS (3)
  - ABDOMINAL PAIN [None]
  - ENZYME ABNORMALITY [None]
  - PANCREATITIS [None]
